FAERS Safety Report 22141623 (Version 1)
Quarter: 2023Q1

REPORT INFORMATION
  Report Type: Spontaneous
  Country: US (occurrence: None)
  Receive Date: 20230324
  Receipt Date: 20230324
  Transmission Date: 20230417
  Serious: Yes (Hospitalization)
  Sender: FDA-Public Use
  Company Number: None

PATIENT
  Age: 37 Year
  Sex: Female

DRUGS (2)
  1. PREVYMIS [Suspect]
     Active Substance: LETERMOVIR
  2. HDROXYUREA [Concomitant]

REACTIONS (1)
  - Bone marrow transplant [None]

NARRATIVE: CASE EVENT DATE: 20230301
